FAERS Safety Report 4772636-X (Version None)
Quarter: 2005Q3

REPORT INFORMATION
  Report Type: 
  Country: None (occurrence: None)
  Receive Date: 20050914
  Receipt Date: 20041112
  Transmission Date: 20060218
  Serious: Yes (Other)
  Sender: FDA-Public Use
  Company Number: 163-20785-04110329

PATIENT
  Age: 79 Year
  Sex: Male

DRUGS (2)
  1. THALOMID [Suspect]
     Indication: METASTATIC MALIGNANT MELANOMA
     Dosage: 100 MG, DAILY, ORAL
     Route: 048
     Dates: start: 20041022, end: 20041101
  2. TEMOZOLOIMIDE (TEMOZOLOMIDE) [Concomitant]

REACTIONS (3)
  - CONSTIPATION [None]
  - HYPOAESTHESIA [None]
  - INTESTINAL OBSTRUCTION [None]
